FAERS Safety Report 9162294 (Version 1)
Quarter: 2013Q1

REPORT INFORMATION
  Report Type: Spontaneous
  Country: US (occurrence: US)
  Receive Date: 20130314
  Receipt Date: 20130314
  Transmission Date: 20140127
  Serious: Yes (Hospitalization)
  Sender: FDA-Public Use
  Company Number: US-MYLANLABS-2013S1004788

PATIENT
  Age: 70 Year
  Sex: Female

DRUGS (3)
  1. VANCOMYCIN [Suspect]
     Indication: PNEUMONIA
     Route: 042
  2. CIPROFLOXACIN [Concomitant]
     Indication: PNEUMONIA
     Route: 042
  3. ZOSYN [Concomitant]
     Indication: PNEUMONIA
     Route: 042

REACTIONS (1)
  - Linear IgA disease [Recovering/Resolving]
